FAERS Safety Report 21162636 (Version 1)
Quarter: 2022Q3

REPORT INFORMATION
  Report Type: Spontaneous
  Country: US (occurrence: None)
  Receive Date: 20220802
  Receipt Date: 20220802
  Transmission Date: 20221027
  Serious: Yes (Life-Threatening)
  Sender: FDA-Public Use
  Company Number: None

PATIENT
  Age: 48 Year
  Sex: Female
  Weight: 59.4 kg

DRUGS (4)
  1. ROCEPHIN [Suspect]
     Active Substance: CEFTRIAXONE SODIUM
     Indication: Pneumonia
     Dosage: FREQUENCY : ONCE;?
     Route: 042
     Dates: start: 20220705, end: 20220705
  2. SODIUM CHLORIDE [Suspect]
     Active Substance: SODIUM CHLORIDE
     Dosage: OTHER FREQUENCY : ONCE;?
     Route: 042
     Dates: start: 20220705, end: 20220705
  3. SODIUM CHLORIDE [Concomitant]
     Active Substance: SODIUM CHLORIDE
     Dates: start: 20220705, end: 20220707
  4. Iopamidol 76% Contrast [Concomitant]
     Dates: start: 20220705, end: 20220705

REACTIONS (8)
  - Pericardial effusion [None]
  - Lymphadenopathy [None]
  - Wheezing [None]
  - Apnoea [None]
  - Cyanosis [None]
  - Lip swelling [None]
  - Swollen tongue [None]
  - Dyspnoea [None]

NARRATIVE: CASE EVENT DATE: 20220705
